FAERS Safety Report 13280689 (Version 3)
Quarter: 2017Q1

REPORT INFORMATION
  Report Type: Spontaneous
  Country: US (occurrence: US)
  Receive Date: 20170301
  Receipt Date: 20170302
  Transmission Date: 20170428
  Serious: No
  Sender: FDA-Public Use
  Company Number: US-INSYS THERAPEUTICS, INC-INS201611-000679

PATIENT
  Sex: Male

DRUGS (3)
  1. SUBSYS [Suspect]
     Active Substance: FENTANYL
     Indication: BREAKTHROUGH PAIN
     Route: 060
     Dates: end: 20161103
  2. SUBSYS [Suspect]
     Active Substance: FENTANYL
  3. OXYMORPHONE [Concomitant]
     Active Substance: OXYMORPHONE

REACTIONS (3)
  - Headache [Unknown]
  - Drug intolerance [Unknown]
  - Dyspnoea [Unknown]
